FAERS Safety Report 9243303 (Version 1)
Quarter: 2013Q2

REPORT INFORMATION
  Report Type: Report from Study
  Country: US (occurrence: US)
  Receive Date: 20130419
  Receipt Date: 20130419
  Transmission Date: 20140414
  Serious: No
  Sender: FDA-Public Use
  Company Number: US-009507513-1304USA009451

PATIENT
  Sex: Female
  Weight: 85.71 kg

DRUGS (1)
  1. IMPLANON [Suspect]
     Dosage: UNK
     Route: 059
     Dates: start: 20121214, end: 20130412

REACTIONS (3)
  - Pain in extremity [Unknown]
  - Hypoaesthesia [Unknown]
  - Metrorrhagia [Unknown]
